FAERS Safety Report 7710335-2 (Version None)
Quarter: 2011Q3

REPORT INFORMATION
  Report Type: 
  Country: None (occurrence: None)
  Receive Date: 20110825
  Receipt Date: 20110818
  Transmission Date: 20111222
  Serious: Yes (Other)
  Sender: FDA-Public Use
  Company Number: FR-PFIZER INC-2011107446

PATIENT
  Age: 81 Year
  Sex: Male

DRUGS (2)
  1. TORISEL [Suspect]
     Dosage: UNK
     Dates: start: 20110309
  2. LEVOTHYROXINE SODIUM [Concomitant]
     Indication: HYPOTHYROIDISM
     Dosage: 25 GTT, 1X/DAY
     Route: 048
     Dates: start: 20110401

REACTIONS (4)
  - EOSINOPHILIA [None]
  - DERMATITIS EXFOLIATIVE GENERALISED [None]
  - PRURITUS [None]
  - RASH ERYTHEMATOUS [None]
